FAERS Safety Report 9314067 (Version 2)
Quarter: 2013Q2

REPORT INFORMATION
  Report Type: Spontaneous
  Country: IN (occurrence: IN)
  Receive Date: 20130529
  Receipt Date: 20130606
  Transmission Date: 20140414
  Serious: Yes (Other)
  Sender: FDA-Public Use
  Company Number: IN-RANBAXY-2013RR-69459

PATIENT
  Age: 2 Year
  Sex: Male

DRUGS (2)
  1. MIDAZOLAM [Suspect]
     Indication: SEDATION
     Dosage: 1 MG OF A PARENTERAL PREPARATION (0.1 MG/KG), GIVEN ORALLY
     Route: 048
  2. AZITHROMYCIN [Interacting]
     Indication: PYREXIA
     Dosage: 200 MG, QD, IN A SYRUP FORMULATION
     Route: 048

REACTIONS (2)
  - Sedation [Recovered/Resolved]
  - Drug interaction [Recovered/Resolved]
